FAERS Safety Report 22269169 (Version 1)
Quarter: 2023Q2

REPORT INFORMATION
  Report Type: Spontaneous
  Country: DE (occurrence: DE)
  Receive Date: 20230501
  Receipt Date: 20230501
  Transmission Date: 20230721
  Serious: Yes (Hospitalization, Other)
  Sender: FDA-Public Use
  Company Number: DE-ROCHE-3312162

PATIENT
  Age: 58 Year
  Sex: Male

DRUGS (2)
  1. RITUXIMAB [Suspect]
     Active Substance: RITUXIMAB
     Indication: Follicular lymphoma
     Dosage: 375 MG/M2
     Route: 042
     Dates: start: 20200506, end: 20220516
  2. VORICONAZOLE [Suspect]
     Active Substance: VORICONAZOLE
     Indication: Follicular lymphoma
     Dosage: UNK
     Route: 065
     Dates: start: 20230119

REACTIONS (4)
  - COVID-19 [Not Recovered/Not Resolved]
  - COVID-19 pneumonia [Recovered/Resolved]
  - Superinfection bacterial [Recovered/Resolved]
  - Pneumonia fungal [Unknown]

NARRATIVE: CASE EVENT DATE: 20220824
